FAERS Safety Report 7054079-1 (Version None)
Quarter: 2010Q4

REPORT INFORMATION
  Report Type: 
  Country: None (occurrence: None)
  Receive Date: 20101020
  Receipt Date: 20101015
  Transmission Date: 20110411
  Serious: Yes (Other)
  Sender: FDA-Public Use
  Company Number: US-BAYER-201037222NA

PATIENT
  Age: 66 Year
  Sex: Male

DRUGS (9)
  1. LEVITRA [Suspect]
     Indication: ERECTILE DYSFUNCTION
     Route: 048
     Dates: start: 20101013, end: 20101014
  2. DIOVAN [Concomitant]
  3. KEPPRA [Concomitant]
  4. HYDRALAZINE HCL [Concomitant]
  5. PACERONE [Concomitant]
  6. COREG [Concomitant]
  7. DOXAZOSIN MESYLATE [Concomitant]
  8. LORAZEPAM [Concomitant]
  9. GLIMEPIRIDE [Concomitant]

REACTIONS (3)
  - DISSOCIATION [None]
  - FEELING JITTERY [None]
  - HEADACHE [None]
